FAERS Safety Report 5027208-9 (Version None)
Quarter: 2006Q2

REPORT INFORMATION
  Report Type: 
  Country: None (occurrence: None)
  Receive Date: 20060501
  Receipt Date: 20051228
  Transmission Date: 20061013
  Serious: No
  Sender: FDA-Public Use
  Company Number: 2005PV006329

PATIENT
  Age: 40 Year
  Sex: Female

DRUGS (4)
  1. SYMLIN [Suspect]
     Indication: DIABETES MELLITUS NON-INSULIN-DEPENDENT
     Dosage: 120 MCG; TID; SC
     Route: 058
     Dates: start: 20051222
  2. ASPIRIN [Concomitant]
  3. LANTUS [Concomitant]
  4. NOVOLOG [Concomitant]

REACTIONS (4)
  - BURNING SENSATION [None]
  - INJECTION SITE BRUISING [None]
  - INJECTION SITE IRRITATION [None]
  - INJECTION SITE PRURITUS [None]
